FAERS Safety Report 17551332 (Version 2)
Quarter: 2020Q2

REPORT INFORMATION
  Report Type: Report from Study
  Country: ES (occurrence: ES)
  Receive Date: 20200317
  Receipt Date: 20200601
  Transmission Date: 20200713
  Serious: Yes (Hospitalization, Other)
  Sender: FDA-Public Use
  Company Number: ES-ACCORD-171502

PATIENT
  Age: 83 Year
  Sex: Female

DRUGS (3)
  1. QUETIAPINE STADA [Concomitant]
     Indication: VASCULAR DEMENTIA
     Dosage: STRENGTH: 25 MG, 2 A DAY
     Route: 048
     Dates: start: 20191024
  2. QUETIAPINE. [Suspect]
     Active Substance: QUETIAPINE
     Indication: DEMENTIA
     Dates: start: 20191024
  3. SEROQUEL [Concomitant]
     Active Substance: QUETIAPINE FUMARATE
     Indication: DEMENTIA
     Dosage: STRENGTH: 100 MG, 1 A DAY
     Route: 048
     Dates: start: 20191024

REACTIONS (4)
  - Somnolence [Recovered/Resolved]
  - Muscle rigidity [Unknown]
  - Off label use [Unknown]
  - Tremor [Unknown]

NARRATIVE: CASE EVENT DATE: 201911
